FAERS Safety Report 13634216 (Version 2)
Quarter: 2017Q2

REPORT INFORMATION
  Report Type: Report from Study
  Country: US (occurrence: US)
  Receive Date: 20170609
  Receipt Date: 20170623
  Transmission Date: 20170830
  Serious: No
  Sender: FDA-Public Use
  Company Number: US-BIOGEN-2017BI00397641

PATIENT
  Age: 30 Year
  Sex: Female

DRUGS (7)
  1. TECFIDERA [Suspect]
     Active Substance: DIMETHYL FUMARATE
     Dosage: MAINTENANCE DOSE
     Route: 048
     Dates: start: 20170420, end: 20170430
  2. TECFIDERA [Suspect]
     Active Substance: DIMETHYL FUMARATE
     Dosage: MAINTENANCE DOSE
     Route: 048
     Dates: start: 20170429, end: 20170502
  3. OMEPRAZOLE. [Concomitant]
     Active Substance: OMEPRAZOLE
     Indication: PRODUCT USED FOR UNKNOWN INDICATION
     Route: 065
  4. TECFIDERA [Suspect]
     Active Substance: DIMETHYL FUMARATE
     Indication: MULTIPLE SCLEROSIS
     Dosage: STARTING DOSE
     Route: 048
     Dates: start: 20170420, end: 20170428
  5. SERTRALINE [Concomitant]
     Active Substance: SERTRALINE HYDROCHLORIDE
     Indication: PRODUCT USED FOR UNKNOWN INDICATION
     Route: 065
  6. LORAZEPAM. [Concomitant]
     Active Substance: LORAZEPAM
     Indication: PRODUCT USED FOR UNKNOWN INDICATION
     Route: 065
  7. TECFIDERA [Suspect]
     Active Substance: DIMETHYL FUMARATE
     Dosage: STARTING DOSE
     Route: 048

REACTIONS (11)
  - Tinnitus [Not Recovered/Not Resolved]
  - Feeding disorder [Recovered/Resolved]
  - Flushing [Recovered/Resolved]
  - Abdominal discomfort [Unknown]
  - Dizziness [Recovered/Resolved]
  - Pain [Recovered/Resolved]
  - Dyspepsia [Not Recovered/Not Resolved]
  - Multiple sclerosis [Recovered/Resolved]
  - Dehydration [Recovered/Resolved]
  - Presyncope [Recovered/Resolved]
  - Nausea [Recovered/Resolved]

NARRATIVE: CASE EVENT DATE: 20170421
